FAERS Safety Report 5930499-0 (Version None)
Quarter: 2008Q4

REPORT INFORMATION
  Report Type: 
  Country: None (occurrence: None)
  Receive Date: 20081026
  Receipt Date: 20081015
  Transmission Date: 20090506
  Serious: Yes (Other)
  Sender: FDA-Public Use
  Company Number: PHHY2008NL14069

PATIENT
  Sex: Male

DRUGS (7)
  1. EXELON [Suspect]
     Indication: DEMENTIA ALZHEIMER'S TYPE
     Dosage: 4.6 MG
     Route: 062
     Dates: start: 20080215, end: 20080314
  2. EXELON [Suspect]
     Dosage: 9.5 MG
     Route: 062
     Dates: start: 20080314
  3. EXELON [Suspect]
     Dosage: 4.6 MG
     Route: 062
     Dates: start: 20080818, end: 20080901
  4. EXELON [Suspect]
     Dosage: 9.5 MG
     Route: 062
     Dates: start: 20080901, end: 20081016
  5. TEGRETOL [Suspect]
     Dosage: 1.5 DF, BID
     Route: 048
  6. ACETYLSALICYLIC ACID SRT [Concomitant]
     Dosage: UNK
  7. ACENOCOUMAROL [Concomitant]

REACTIONS (3)
  - BLOOD PRESSURE INCREASED [None]
  - CARDIAC PACEMAKER INSERTION [None]
  - HEART RATE DECREASED [None]
